FAERS Safety Report 10377944 (Version 2)
Quarter: 2014Q3

REPORT INFORMATION
  Report Type: Spontaneous
  Country: JP (occurrence: JP)
  Receive Date: 20140812
  Receipt Date: 20140930
  Transmission Date: 20150326
  Serious: Yes (Death)
  Sender: FDA-Public Use
  Company Number: PHHY2014JP098033

PATIENT
  Age: 7 Month
  Sex: Male

DRUGS (2)
  1. IMATINIB [Suspect]
     Active Substance: IMATINIB
     Indication: ACUTE MYELOMONOCYTIC LEUKAEMIA
  2. IMATINIB [Suspect]
     Active Substance: IMATINIB
     Indication: OFF LABEL USE

REACTIONS (2)
  - No therapeutic response [Unknown]
  - Death [Fatal]
